FAERS Safety Report 19455349 (Version 1)
Quarter: 2021Q2

REPORT INFORMATION
  Report Type: Spontaneous
  Country: CA (occurrence: CA)
  Receive Date: 20210623
  Receipt Date: 20210623
  Transmission Date: 20210717
  Serious: Yes (Other)
  Sender: FDA-Public Use
  Company Number: CA-JNJFOC-20210604177

PATIENT
  Age: 73 Year
  Sex: Female
  Weight: 70 kg

DRUGS (5)
  1. REMICADE [Suspect]
     Active Substance: INFLIXIMAB
     Indication: RHEUMATOID ARTHRITIS
     Route: 042
  2. AMITRIPTYLINE [Concomitant]
     Active Substance: AMITRIPTYLINE
     Indication: HERPES ZOSTER
     Route: 065
  3. REMICADE [Suspect]
     Active Substance: INFLIXIMAB
     Route: 042
  4. METHOTREXATE. [Concomitant]
     Active Substance: METHOTREXATE
     Indication: RHEUMATOID ARTHRITIS
     Route: 048
  5. VALTREX [Concomitant]
     Active Substance: VALACYCLOVIR HYDROCHLORIDE
     Indication: HERPES ZOSTER
     Route: 065

REACTIONS (8)
  - Product use issue [Unknown]
  - Osteoarthritis [Unknown]
  - C-reactive protein increased [Unknown]
  - Rheumatoid arthritis [Unknown]
  - Off label use [Unknown]
  - Therapeutic response shortened [Unknown]
  - Headache [Unknown]
  - Pain [Unknown]
